FAERS Safety Report 10457785 (Version 2)
Quarter: 2014Q3

REPORT INFORMATION
  Report Type: Spontaneous
  Country: US (occurrence: US)
  Receive Date: 20140916
  Receipt Date: 20140916
  Transmission Date: 20150326
  Serious: Yes (Hospitalization)
  Sender: FDA-Public Use
  Company Number: US-GLAXOSMITHKLINE-A0865575A

PATIENT
  Sex: Female

DRUGS (1)
  1. AVANDIA [Suspect]
     Active Substance: ROSIGLITAZONE MALEATE
     Indication: TYPE 2 DIABETES MELLITUS
     Dosage: 8MG PER DAY
     Route: 048
     Dates: start: 20000406, end: 20030318

REACTIONS (6)
  - Cardiac failure congestive [Unknown]
  - Cardiac disorder [Unknown]
  - Arteriosclerosis coronary artery [Unknown]
  - Angina pectoris [Unknown]
  - Coronary artery disease [Unknown]
  - Myocardial infarction [Unknown]
